FAERS Safety Report 5055308-6 (Version None)
Quarter: 2006Q3

REPORT INFORMATION
  Report Type: 
  Country: None (occurrence: None)
  Receive Date: 20060714
  Receipt Date: 20060511
  Transmission Date: 20061208
  Serious: Yes (Hospitalization)
  Sender: FDA-Public Use
  Company Number: MEDI-0004561

PATIENT
  Age: 4 Month
  Sex: Female

DRUGS (1)
  1. SYNAGIS [Suspect]
     Dates: start: 20050927, end: 20050927

REACTIONS (4)
  - DEAFNESS [None]
  - FLUID INTAKE REDUCED [None]
  - NASOPHARYNGITIS [None]
  - PNEUMOCOCCAL INFECTION [None]
